FAERS Safety Report 15258244 (Version 1)
Quarter: 2018Q3

REPORT INFORMATION
  Report Type: Other
  Country: TR (occurrence: TR)
  Receive Date: 20180809
  Receipt Date: 20180809
  Transmission Date: 20181010
  Serious: Yes (Death, Congenital Anomaly)
  Sender: FDA-Public Use
  Company Number: TR-DEXPHARM-20180549

PATIENT

DRUGS (3)
  1. VALPORATE [Suspect]
     Active Substance: VALPROATE SODIUM
     Dosage: 1000
  2. BENZODIAZEPINE [Suspect]
     Active Substance: BENZODIAZEPINE
  3. LEVETIRACETAM. [Suspect]
     Active Substance: LEVETIRACETAM

REACTIONS (5)
  - Craniofacial deformity [Fatal]
  - Congenital musculoskeletal anomaly [Fatal]
  - Gastrointestinal malformation [Fatal]
  - Foetal exposure during pregnancy [Fatal]
  - Ventricular septal defect [Fatal]
